FAERS Safety Report 5989514-0 (Version None)
Quarter: 2008Q4

REPORT INFORMATION
  Report Type: 
  Country: None (occurrence: None)
  Receive Date: 20081210
  Receipt Date: 20081204
  Transmission Date: 20090506
  Serious: Yes (Hospitalization)
  Sender: FDA-Public Use
  Company Number: US-ABBOTT-08P-163-0491093-00

PATIENT
  Sex: Female
  Weight: 70.37 kg

DRUGS (24)
  1. HUMIRA [Suspect]
     Indication: RHEUMATOID ARTHRITIS
     Dosage: 3 SHOTS TOTAL
     Route: 050
     Dates: start: 20061027, end: 20061123
  2. VITAMIN TAB [Concomitant]
     Indication: PREGNANCY
     Route: 048
     Dates: start: 20060530, end: 20060711
  3. MULTI-VITAMINS [Concomitant]
     Indication: PREGNANCY
     Route: 048
     Dates: start: 20060712
  4. FOLIC ACID [Concomitant]
     Indication: DRUG USE FOR UNKNOWN INDICATION
     Route: 048
     Dates: end: 20060705
  5. ACETAMINOPHEN [Concomitant]
     Indication: RHEUMATOID ARTHRITIS
     Route: 048
     Dates: end: 20060530
  6. CORTICOSTEROID NOS [Concomitant]
     Indication: RHEUMATOID ARTHRITIS
     Dosage: 2 SHOTS
     Route: 050
     Dates: start: 20060712, end: 20060712
  7. CORTICOSTEROID NOS [Concomitant]
     Dosage: 2 SHOTS
     Route: 050
     Dates: start: 20060727, end: 20060727
  8. CORTICOSTEROID NOS [Concomitant]
     Dosage: 1/2 PILL
     Route: 048
     Dates: start: 20061003, end: 20061004
  9. ONDANSETRON [Concomitant]
     Indication: NAUSEA
     Route: 048
     Dates: start: 20060724, end: 20061227
  10. CHLORPHENIRAMINE MALEATE [Concomitant]
     Indication: HYPERSENSITIVITY
     Route: 048
     Dates: start: 20060822, end: 20060828
  11. CHLORPHENIRAMINE MALEATE [Concomitant]
     Dates: start: 20061220, end: 20070110
  12. INFLUENZA VIRUS VACCINE POLYVALENT [Concomitant]
     Indication: INFLUENZA IMMUNISATION
     Dosage: 1 SHOT
     Route: 050
     Dates: start: 20061013, end: 20061013
  13. UNKNOWN MEDICATION [Concomitant]
     Indication: RHEUMATOID ARTHRITIS
     Route: 048
     Dates: start: 20061005, end: 20061014
  14. STEROID NOS [Concomitant]
     Indication: RHEUMATOID ARTHRITIS
     Dosage: ONE SHOT IN LEFT HIP
     Route: 050
     Dates: start: 20061016, end: 20061016
  15. INFLIXIMAB [Concomitant]
     Indication: RHEUMATOID ARTHRITIS
     Dosage: 1 INFUSION
     Route: 042
     Dates: start: 20061130, end: 20061130
  16. INFLIXIMAB [Concomitant]
     Dosage: 1 INFUSION
     Route: 042
     Dates: start: 20061214, end: 20061214
  17. INFLIXIMAB [Concomitant]
     Dosage: 1 INFUSION
     Route: 042
     Dates: start: 20070111, end: 20070111
  18. LORTAB [Concomitant]
     Indication: RHEUMATOID ARTHRITIS
     Route: 048
     Dates: start: 20061015, end: 20061027
  19. LORTAB [Concomitant]
     Dosage: 1/2 OF A 5MG PILL
     Route: 048
     Dates: start: 20061028, end: 20061129
  20. METHYLPREDNISOLONE SODIUM SUCCINATE [Concomitant]
     Indication: RHEUMATOID ARTHRITIS
     Dosage: ONCE
     Route: 042
     Dates: start: 20061127, end: 20061127
  21. ACETAMINOPHEN [Concomitant]
     Route: 048
     Dates: start: 20060615, end: 20061020
  22. ACETAMINOPHEN [Concomitant]
     Route: 048
     Dates: start: 20070108
  23. FLUTICASONE PROPIONATE [Concomitant]
     Indication: HYPERSENSITIVITY
     Route: 045
     Dates: start: 20070201, end: 20070205
  24. METHOTREXATE [Concomitant]
     Indication: RHEUMATOID ARTHRITIS
     Route: 050
     Dates: end: 20060530

REACTIONS (4)
  - CYSTITIS [None]
  - RESPIRATORY TRACT INFECTION [None]
  - RHEUMATOID ARTHRITIS [None]
  - UTERINE HYPERTONUS [None]
